FAERS Safety Report 24663346 (Version 1)
Quarter: 2024Q4

REPORT INFORMATION
  Report Type: Report from Study
  Country: US (occurrence: US)
  Receive Date: 20241126
  Receipt Date: 20241126
  Transmission Date: 20250115
  Serious: Yes (Other)
  Sender: INSMED
  Company Number: US-INSMED-2022-01469-USAA

PATIENT
  Age: 49 Year
  Sex: Male
  Weight: 55.782 kg

DRUGS (4)
  1. ARIKAYCE [Suspect]
     Active Substance: AMIKACIN
     Indication: Mycobacterium avium complex infection
     Dosage: 590 MILLIGRAM, QD
     Route: 055
     Dates: start: 202205, end: 202205
  2. ARIKAYCE [Suspect]
     Active Substance: AMIKACIN
     Dosage: 590 MILLIGRAM, QD
     Route: 055
     Dates: start: 20240417, end: 2024
  3. ARIKAYCE [Suspect]
     Active Substance: AMIKACIN
     Dosage: 590 MILLIGRAM, TIW
     Route: 055
     Dates: start: 2024, end: 2024
  4. ARIKAYCE [Suspect]
     Active Substance: AMIKACIN
     Dosage: 590 MILLIGRAM, UNK
     Route: 055
     Dates: start: 2024, end: 2024

REACTIONS (19)
  - Condition aggravated [Not Recovered/Not Resolved]
  - Limb traumatic amputation [Unknown]
  - Lung disorder [Unknown]
  - Chest pain [Unknown]
  - Increased viscosity of bronchial secretion [Unknown]
  - Rhinorrhoea [Unknown]
  - Rales [Unknown]
  - Sputum discoloured [Unknown]
  - Pain [Unknown]
  - Dyspnoea exertional [Unknown]
  - Chest discomfort [Recovered/Resolved]
  - Chest discomfort [Unknown]
  - Post-tussive vomiting [Unknown]
  - Productive cough [Unknown]
  - Cough [Unknown]
  - Dyspnoea [Unknown]
  - Therapy interrupted [Unknown]
  - Off label use [Unknown]
  - Drug ineffective [Unknown]

NARRATIVE: CASE EVENT DATE: 20220501
